FAERS Safety Report 17151317 (Version 1)
Quarter: 2019Q4

REPORT INFORMATION
  Report Type: Spontaneous
  Country: US (occurrence: US)
  Receive Date: 20191212
  Receipt Date: 20191212
  Transmission Date: 20200122
  Serious: Yes (Hospitalization, Disabling, Other)
  Sender: FDA-Public Use
  Company Number: None

PATIENT
  Age: 56 Year
  Sex: Female
  Weight: 81.45 kg

DRUGS (11)
  1. LUTEIN [Concomitant]
     Active Substance: LUTEIN
  2. NOVOLIN N AND NOVOLIN R [Concomitant]
  3. NOVOLIN R [Suspect]
     Active Substance: INSULIN HUMAN
     Indication: DIABETES MELLITUS MANAGEMENT
     Dosage: ?          OTHER STRENGTH:UNITS/ML 10 ML;QUANTITY:100 INJECTION(S);?
     Route: 030
     Dates: start: 20191016, end: 20191211
  4. VITAMINS [Concomitant]
     Active Substance: VITAMINS
  5. NIFEDIPINE. [Suspect]
     Active Substance: NIFEDIPINE
     Indication: BLOOD PRESSURE MEASUREMENT
     Dosage: ?          QUANTITY:30 TABLET(S);?
     Route: 048
     Dates: start: 20191112, end: 20191206
  6. AMLODIPINE [Concomitant]
     Active Substance: AMLODIPINE BESYLATE
  7. SULFAMETHOXAZOLE TRIMETHOPIM [Concomitant]
  8. ASPIRIN. [Concomitant]
     Active Substance: ASPIRIN
  9. ROSUVASTATIN. [Concomitant]
     Active Substance: ROSUVASTATIN
  10. LISINOPRIL LEVETIRACETAM ER [Concomitant]
  11. ONDANSETRON ODT AND DICYCLOMINE AND BACT [Concomitant]

REACTIONS (5)
  - Abdominal pain lower [None]
  - Visual impairment [None]
  - Impaired driving ability [None]
  - Vision blurred [None]
  - Photophobia [None]

NARRATIVE: CASE EVENT DATE: 20191206
